FAERS Safety Report 25207306 (Version 1)
Quarter: 2025Q2

REPORT INFORMATION
  Report Type: Spontaneous
  Country: US (occurrence: None)
  Receive Date: 20250416
  Receipt Date: 20250416
  Transmission Date: 20250716
  Serious: No
  Sender: FDA-CTU
  Company Number: None

PATIENT
  Age: 81 Year
  Sex: Male
  Weight: 82.55 kg

DRUGS (1)
  1. XDEMVY [Suspect]
     Active Substance: LOTILANER
     Indication: Ocular demodicosis
     Dosage: INSTILL 1 DROP INTO EACH EYE BID OPHTHALMIC
     Route: 047
     Dates: start: 20250106, end: 20250320

REACTIONS (1)
  - Eyelid margin crusting [None]

NARRATIVE: CASE EVENT DATE: 20250202
